FAERS Safety Report 5023018-7 (Version None)
Quarter: 2006Q2

REPORT INFORMATION
  Report Type: 
  Country: None (occurrence: None)
  Receive Date: 20060426
  Receipt Date: 20060223
  Transmission Date: 20061013
  Serious: Yes (Other)
  Sender: FDA-Public Use
  Company Number: 2006026926

PATIENT

DRUGS (2)
  1. LYRICA [Suspect]
     Indication: ILL-DEFINED DISORDER
     Dosage: 150 MG (75 MG,2 IN 1 D)
     Dates: start: 20060221, end: 20060223
  2. CYMBALTA [Suspect]
     Indication: ILL-DEFINED DISORDER
     Dosage: 20 MG (20 MG,1 IN 1 D)
     Dates: start: 20060221

REACTIONS (1)
  - STEVENS-JOHNSON SYNDROME [None]
